FAERS Safety Report 20632989 (Version 1)
Quarter: 2022Q1

REPORT INFORMATION
  Report Type: Spontaneous
  Country: US (occurrence: US)
  Receive Date: 20220324
  Receipt Date: 20220324
  Transmission Date: 20220424
  Serious: No
  Sender: FDA-Public Use
  Company Number: US-UPSHER-SMITH LABORATORIES, LLC-2021USL00639

PATIENT
  Sex: Male

DRUGS (6)
  1. PREVALITE [Suspect]
     Active Substance: CHOLESTYRAMINE
     Indication: Diarrhoea
     Dosage: 1 DOSAGE UNITS (SCOOP), 2X/DAY
     Dates: start: 202104, end: 2021
  2. PREVALITE [Suspect]
     Active Substance: CHOLESTYRAMINE
     Dosage: ^LESS AND LESS^, 2X/DAY
     Dates: start: 2021, end: 2021
  3. PREVALITE [Suspect]
     Active Substance: CHOLESTYRAMINE
     Dosage: 0.33 DOSAGE UNITS (SCOOP), 1X/DAY IN THE MORNING
     Dates: start: 2021
  4. PREVALITE [Suspect]
     Active Substance: CHOLESTYRAMINE
     Dosage: 0.5 DOSAGE UNITS (SCOOP), 1X/DAY IN THE EVENING
     Dates: start: 2021
  5. WARFARIN [Concomitant]
     Active Substance: WARFARIN
  6. SOTALOL [Concomitant]
     Active Substance: SOTALOL

REACTIONS (16)
  - Musculoskeletal stiffness [Not Recovered/Not Resolved]
  - Asthenia [Not Recovered/Not Resolved]
  - Gait disturbance [Not Recovered/Not Resolved]
  - Sexual dysfunction [Not Recovered/Not Resolved]
  - Listless [Not Recovered/Not Resolved]
  - Loss of libido [Recovering/Resolving]
  - Confusional state [Not Recovered/Not Resolved]
  - Dry eye [Not Recovered/Not Resolved]
  - Erectile dysfunction [Not Recovered/Not Resolved]
  - Dizziness [Not Recovered/Not Resolved]
  - Myalgia [Not Recovered/Not Resolved]
  - Arthralgia [Not Recovered/Not Resolved]
  - Fatigue [Not Recovered/Not Resolved]
  - Somnolence [Not Recovered/Not Resolved]
  - Dysphagia [Not Recovered/Not Resolved]
  - Intentional product use issue [Not Recovered/Not Resolved]

NARRATIVE: CASE EVENT DATE: 20210101
